FAERS Safety Report 13114326 (Version 1)
Quarter: 2017Q1

REPORT INFORMATION
  Report Type: Spontaneous
  Country: IN (occurrence: IN)
  Receive Date: 20170113
  Receipt Date: 20170113
  Transmission Date: 20170428
  Serious: Yes (Death)
  Sender: FDA-Public Use
  Company Number: IN-PFIZER INC-2016039877

PATIENT
  Age: 62 Year
  Sex: Male

DRUGS (1)
  1. SUTENT [Suspect]
     Active Substance: SUNITINIB MALATE
     Indication: METASTATIC RENAL CELL CARCINOMA
     Dosage: 50 MG ONCE DAILY, CYCLIC FOR 2 WEEKS ON AND 1 WEEK OFF
     Route: 048
     Dates: start: 20160118

REACTIONS (6)
  - Nightmare [Unknown]
  - Rash [Unknown]
  - Fatigue [Recovering/Resolving]
  - Death [Fatal]
  - Abdominal pain [Recovering/Resolving]
  - Dry mouth [Recovering/Resolving]

NARRATIVE: CASE EVENT DATE: 201601
